FAERS Safety Report 19464573 (Version 5)
Quarter: 2021Q3

REPORT INFORMATION
  Report Type: Report from Study
  Country: US (occurrence: US)
  Receive Date: 20210626
  Receipt Date: 20210923
  Transmission Date: 20211014
  Serious: Yes (Hospitalization, Other)
  Sender: FDA-Public Use
  Company Number: US-TAKEDA-2021TUS038782

PATIENT
  Sex: Female

DRUGS (1)
  1. HUMAN NORMAL IMMUNOGLOBULIN; LIQUID [Suspect]
     Active Substance: HUMAN IMMUNOGLOBULIN G
     Indication: PRIMARY IMMUNODEFICIENCY SYNDROME
     Dosage: 50 GRAM
     Route: 042

REACTIONS (9)
  - Renal stone removal [Unknown]
  - Urinary tract infection [Unknown]
  - Barrett^s oesophagus [Unknown]
  - Breast cancer [Unknown]
  - Nephrolithiasis [Unknown]
  - Renal abscess [Unknown]
  - Ear infection [Unknown]
  - Lymphadenopathy [Unknown]
  - Gastric dysplasia [Unknown]
